FAERS Safety Report 21409720 (Version 2)
Quarter: 2022Q4

REPORT INFORMATION
  Report Type: Report from Study
  Country: JP (occurrence: JP)
  Receive Date: 20221005
  Receipt Date: 20221019
  Transmission Date: 20230112
  Serious: Yes (Hospitalization)
  Sender: FDA-Public Use
  Company Number: JP-NOVARTISPH-NVSJ2022JP098534

PATIENT
  Age: 40 Year
  Sex: Female

DRUGS (6)
  1. ARTEMETHER\LUMEFANTRINE [Suspect]
     Active Substance: ARTEMETHER\LUMEFANTRINE
     Indication: Plasmodium falciparum infection
     Dosage: 4 DOSAGE FORM, BID
     Route: 048
     Dates: start: 20220911
  2. ARTEMETHER\LUMEFANTRINE [Suspect]
     Active Substance: ARTEMETHER\LUMEFANTRINE
     Dosage: 4 DOSAGE FORM, BID
     Route: 048
     Dates: start: 20220912
  3. ARTEMETHER\LUMEFANTRINE [Suspect]
     Active Substance: ARTEMETHER\LUMEFANTRINE
     Dosage: 4 DOSAGE FORM, BID
     Route: 048
     Dates: start: 20220913
  4. CALCIUM CHLORIDE\POTASSIUM CHLORIDE\SODIUM ACETATE\SODIUM CHLORIDE [Concomitant]
     Active Substance: CALCIUM CHLORIDE\POTASSIUM CHLORIDE\SODIUM ACETATE\SODIUM CHLORIDE
     Indication: Plasmodium falciparum infection
     Dosage: UNK
     Route: 041
     Dates: start: 20220911, end: 20220911
  5. SOLDEM 3AG [Concomitant]
     Indication: Plasmodium falciparum infection
     Dosage: UNK
     Route: 041
     Dates: start: 20220911, end: 20220913
  6. ACETAMINOPHEN [Concomitant]
     Active Substance: ACETAMINOPHEN
     Indication: Plasmodium falciparum infection
     Dosage: UNK
     Route: 042
     Dates: start: 20220911, end: 20220912

REACTIONS (3)
  - Plasmodium vivax infection [Recovered/Resolved]
  - Concomitant disease aggravated [Recovered/Resolved]
  - Pyrexia [Unknown]

NARRATIVE: CASE EVENT DATE: 20220930
